FAERS Safety Report 12644464 (Version 2)
Quarter: 2016Q3

REPORT INFORMATION
  Report Type: Spontaneous
  Country: DE (occurrence: DE)
  Receive Date: 20160811
  Receipt Date: 20160817
  Transmission Date: 20161109
  Serious: Yes (Disabling)
  Sender: FDA-Public Use
  Company Number: DE-B.I. PHARMACEUTICALS,INC./RIDGEFIELD-2016-BI-45222DE

PATIENT
  Age: 79 Year
  Sex: Female
  Weight: 75 kg

DRUGS (8)
  1. MOXONIDIN [Concomitant]
     Active Substance: MOXONIDINE
     Indication: HYPERTENSION
     Dosage: 1 ANZ
     Route: 048
     Dates: start: 2013
  2. CANDESARTAN [Concomitant]
     Active Substance: CANDESARTAN
     Indication: HYPERTENSION
     Dosage: 1 ANZ
     Route: 048
     Dates: start: 2013
  3. KLOSTERFRAU ALLERGIN [Concomitant]
     Indication: HYPERSENSITIVITY
     Dosage: 30 ANZ
     Route: 048
     Dates: start: 2013
  4. SIFROL [Suspect]
     Active Substance: PRAMIPEXOLE
     Indication: RESTLESS LEGS SYNDROME
     Dosage: 0.52 MG
     Route: 048
     Dates: start: 2014
  5. AMLODIPIN [Concomitant]
     Active Substance: AMLODIPINE BESYLATE
     Indication: HYPERTENSION
     Dosage: 0.5 ANZ
     Route: 048
     Dates: start: 2013
  6. EBRANTIL [Concomitant]
     Active Substance: URAPIDIL
     Indication: HYPERTENSION
     Dosage: 1 ANZ
     Route: 048
     Dates: start: 2013
  7. CLONIDIN RATIONPHARM [Concomitant]
     Indication: HYPERTENSION
     Dosage: 1 ANZ
     Route: 048
     Dates: start: 2013
  8. CANDECOR COMP [Concomitant]
     Indication: HYPERTENSION
     Dosage: 0.5 ANZ
     Route: 048
     Dates: start: 2013

REACTIONS (5)
  - Drug ineffective [Not Recovered/Not Resolved]
  - Condition aggravated [Unknown]
  - Medication residue present [Unknown]
  - Off label use [Not Recovered/Not Resolved]
  - Product quality issue [Unknown]

NARRATIVE: CASE EVENT DATE: 2014
